FAERS Safety Report 5216162-2 (Version None)
Quarter: 2006Q4

REPORT INFORMATION
  Report Type: 
  Country: None (occurrence: None)
  Receive Date: 20061122
  Receipt Date: 20060706
  Transmission Date: 20070319
  Serious: Yes (Other)
  Sender: FDA-Public Use
  Company Number: 2006084274

PATIENT
  Age: 72 Year
  Sex: Male
  Weight: 88.4514 kg

DRUGS (5)
  1. LIPITOR [Suspect]
     Indication: DRUG USE FOR UNKNOWN INDICATION
     Dosage: 10 MG (10 MG, DAILY)
  2. WARFARIN SODIUM [Concomitant]
  3. OLMESARTAN (OLMESARTAN) [Concomitant]
  4. METOPROLOL TARTRATE [Concomitant]
  5. BENICAR [Concomitant]

REACTIONS (1)
  - ATRIAL FIBRILLATION [None]
